FAERS Safety Report 7304534-1 (Version None)
Quarter: 2011Q1

REPORT INFORMATION
  Report Type: 
  Country: None (occurrence: None)
  Receive Date: 20110221
  Receipt Date: 20100825
  Transmission Date: 20110831
  Serious: Yes (Other)
  Sender: FDA-Public Use
  Company Number: PHHY2010US58934

PATIENT
  Age: 32 Year
  Sex: Female

DRUGS (2)
  1. METYRAPONE [Suspect]
     Indication: CUSHING'S SYNDROME
     Dosage: 250 MG DAILY
  2. METYRAPONE [Suspect]
     Dosage: 250 MG, TID

REACTIONS (10)
  - CENTRAL OBESITY [None]
  - CAESAREAN SECTION [None]
  - NEOPLASM PROGRESSION [None]
  - PREMATURE LABOUR [None]
  - PREMATURE BABY [None]
  - SKIN STRIAE [None]
  - ACNE [None]
  - LIPOHYPERTROPHY [None]
  - ADRENALECTOMY [None]
  - DRUG EXPOSURE DURING PREGNANCY [None]
